FAERS Safety Report 12861601 (Version 2)
Quarter: 2017Q1

REPORT INFORMATION
  Report Type: Spontaneous
  Country: US (occurrence: US)
  Receive Date: 20161019
  Receipt Date: 20170117
  Transmission Date: 20170428
  Serious: Yes (Other)
  Sender: FDA-Public Use
  Company Number: US-PFIZER INC-2016276749

PATIENT
  Age: 83 Year
  Sex: Female
  Weight: 75 kg

DRUGS (8)
  1. REVATIO [Suspect]
     Active Substance: SILDENAFIL CITRATE
     Indication: PULMONARY HYPERTENSION
     Dosage: 20 MG, 3X/DAY
     Route: 048
     Dates: start: 2012
  2. ROPINIROLE. [Concomitant]
     Active Substance: ROPINIROLE
     Indication: RESTLESS LEGS SYNDROME
     Dosage: 25 MG TABLET, ONE TO TWO TABLETS A DAY
  3. BUDESONIDE. [Concomitant]
     Active Substance: BUDESONIDE
     Dosage: 0.25 MG, 2X/DAY
     Route: 045
  4. METOPROLOL. [Concomitant]
     Active Substance: METOPROLOL
     Indication: HEART RATE ABNORMAL
     Dosage: 25 MG, 3X/DAY
  5. REVATIO [Suspect]
     Active Substance: SILDENAFIL CITRATE
     Indication: DYSPNOEA
     Dosage: 20 MG, 2X/DAY
     Dates: start: 2012, end: 201612
  6. LISINOPRIL. [Concomitant]
     Active Substance: LISINOPRIL
     Indication: BLOOD PRESSURE ABNORMAL
     Dosage: 10 MG, 2X/DAY
     Route: 048
  7. ALPRAZOLAM. [Concomitant]
     Active Substance: ALPRAZOLAM
     Indication: ANXIETY
     Dosage: 0.5 MG, 1X/DAY (TAKES IT ONE AT BEDTIME)
     Route: 048
  8. PERFOROMIST [Concomitant]
     Active Substance: FORMOTEROL FUMARATE DIHYDRATE
     Dosage: UNK, 2X/DAY (TAKES 20 ^MG CG 2 ML^ IN NEBULIZER)
     Route: 045

REACTIONS (2)
  - Condition aggravated [Not Recovered/Not Resolved]
  - Dyspnoea [Not Recovered/Not Resolved]

NARRATIVE: CASE EVENT DATE: 2016
